FAERS Safety Report 8740901 (Version 2)
Quarter: 2012Q4

REPORT INFORMATION
  Report Type: 
  Country: US (occurrence: US)
  Receive Date: 20120823
  Receipt Date: 20120923
  Transmission Date: 20130627
  Serious: No
  Sender: FDA-Public Use
  Company Number: US-009507513-1208USA008632

PATIENT
  Age: 31 Year
  Sex: Female

DRUGS (2)
  1. IMPLANON [Suspect]
     Indication: CONTRACEPTION
     Dosage: 1 DF, UNK
     Route: 059
     Dates: start: 2006, end: 200910
  2. IMPLANON [Suspect]
     Dosage: UNK
     Route: 059
     Dates: start: 200910

REACTIONS (2)
  - Vulva cyst [Not Recovered/Not Resolved]
  - Medical device complication [Unknown]
